FAERS Safety Report 14631433 (Version 2)
Quarter: 2018Q3

REPORT INFORMATION
  Report Type: Spontaneous
  Country: US (occurrence: US)
  Receive Date: 20180313
  Receipt Date: 20180731
  Transmission Date: 20181010
  Serious: Yes (Other)
  Sender: FDA-Public Use
  Company Number: US-BAYER-2018-041717

PATIENT
  Age: 83 Year
  Sex: Male

DRUGS (2)
  1. XOFIGO [Suspect]
     Active Substance: RADIUM RA-223 DICHLORIDE
     Indication: PROSTATE CANCER
     Dosage: UNK
     Dates: start: 20180214
  2. XGEVA [Concomitant]
     Active Substance: DENOSUMAB

REACTIONS (9)
  - Chorioretinitis [Recovering/Resolving]
  - Protein urine present [None]
  - Anaemia [None]
  - Cystoid macular oedema [Recovering/Resolving]
  - Iritis [None]
  - Cough [None]
  - Osteoporosis [None]
  - Tinnitus [None]
  - Blood urine present [None]

NARRATIVE: CASE EVENT DATE: 20180301
